FAERS Safety Report 16039752 (Version 1)
Quarter: 2019Q1

REPORT INFORMATION
  Report Type: Spontaneous
  Country: NO (occurrence: NO)
  Receive Date: 20190306
  Receipt Date: 20190306
  Transmission Date: 20190418
  Serious: Yes (Hospitalization, Congenital Anomaly)
  Sender: FDA-Public Use
  Company Number: NO-ALLERGAN-1908255US

PATIENT
  Sex: Male

DRUGS (5)
  1. ESCITALOPRAM OXALATE - BP [Suspect]
     Active Substance: ESCITALOPRAM OXALATE
     Indication: MATERNAL EXPOSURE DURING PREGNANCY
     Dosage: 5 MG, QD
     Route: 064
     Dates: start: 20181021, end: 20181030
  2. FURADANTIN [Suspect]
     Active Substance: NITROFURANTOIN
     Indication: MATERNAL EXPOSURE DURING PREGNANCY
     Dosage: 50 MG, Q8HR
     Route: 064
     Dates: start: 20180914, end: 20180921
  3. SEROQUEL [Suspect]
     Active Substance: QUETIAPINE FUMARATE
     Indication: MATERNAL EXPOSURE DURING PREGNANCY
     Dosage: 100 MG, QD
     Route: 064
     Dates: start: 20181026
  4. TRUXAL [Suspect]
     Active Substance: CHLORPROTHIXENE
     Indication: MATERNAL EXPOSURE DURING PREGNANCY
     Dosage: 2 DF, QHS
     Route: 064
     Dates: start: 20180523, end: 20180914
  5. MIRTAZAPIN ORION [Suspect]
     Active Substance: MIRTAZAPINE
     Indication: MATERNAL EXPOSURE DURING PREGNANCY
     Dosage: 15 MG, PRN (AT NIGHT IF NECESSARY, AS REQUIRED)
     Route: 064
     Dates: start: 20181023, end: 20181024

REACTIONS (2)
  - Foetal exposure during pregnancy [Unknown]
  - Duodenal stenosis [Unknown]

NARRATIVE: CASE EVENT DATE: 20181123
